FAERS Safety Report 6314340-2 (Version None)
Quarter: 2009Q3

REPORT INFORMATION
  Report Type: 
  Country: None (occurrence: None)
  Receive Date: 20090819
  Receipt Date: 20090807
  Transmission Date: 20100115
  Serious: Yes (Other)
  Sender: FDA-Public Use
  Company Number: GB-ELI_LILLY_AND_COMPANY-GB200908002054

PATIENT
  Age: 63 Year
  Sex: Male

DRUGS (2)
  1. BYETTA [Suspect]
     Indication: OBESITY
     Dosage: 5 UG, 2/D
     Route: 058
     Dates: start: 20090710, end: 20090715
  2. GLICLAZIDE [Concomitant]
     Indication: DIABETES MELLITUS
     Dosage: 80 MG, 2/D
     Route: 048

REACTIONS (9)
  - ABNORMAL DREAMS [None]
  - DELIRIUM [None]
  - HEADACHE [None]
  - HYPOAESTHESIA [None]
  - HYPOAESTHESIA ORAL [None]
  - INSOMNIA [None]
  - MUSCLE SPASMS [None]
  - OFF LABEL USE [None]
  - VISUAL IMPAIRMENT [None]
